FAERS Safety Report 13164630 (Version 2)
Quarter: 2017Q1

REPORT INFORMATION
  Report Type: Report from Study
  Country: US (occurrence: US)
  Receive Date: 20170130
  Receipt Date: 20170308
  Transmission Date: 20170428
  Serious: Yes (Death, Hospitalization)
  Sender: FDA-Public Use
  Company Number: US-BAYER-2017-013124

PATIENT
  Age: 74 Year
  Sex: Male

DRUGS (2)
  1. STIVARGA [Suspect]
     Active Substance: REGORAFENIB
     Indication: COLON CANCER
     Dosage: 160 MG, QD
     Route: 048
     Dates: start: 20161111, end: 20161230
  2. STIVARGA [Suspect]
     Active Substance: REGORAFENIB
     Indication: COLON CANCER
     Dosage: 120 MG, QD
     Route: 048
     Dates: start: 20170118, end: 201702

REACTIONS (5)
  - Blister [Not Recovered/Not Resolved]
  - Balance disorder [None]
  - Off label use [None]
  - Palmar-plantar erythrodysaesthesia syndrome [None]
  - Death [Fatal]

NARRATIVE: CASE EVENT DATE: 20170101
